FAERS Safety Report 4441880-3 (Version None)
Quarter: 2004Q3

REPORT INFORMATION
  Report Type: 
  Country: None (occurrence: None)
  Receive Date: 20040901
  Receipt Date: 20040817
  Transmission Date: 20050211
  Serious: Yes (Hospitalization)
  Sender: FDA-Public Use
  Company Number: 2004229287CA

PATIENT
  Age: 79 Year
  Sex: Male

DRUGS (11)
  1. MICRONASE [Suspect]
     Indication: DIABETES MELLITUS NON-INSULIN-DEPENDENT
     Dosage: 10 MG, QD
  2. METIGUANIDE (METFORMIN HYDROCHLORIDE) [Suspect]
     Dosage: 2500 MG, QD
  3. GATIFLOXACIN [Suspect]
     Indication: PNEUMONIA
     Dosage: 400 MG , QD
  4. AMLODIPINE [Concomitant]
  5. IRBERSARTAN [Concomitant]
  6. TERAZOSIN HCL [Concomitant]
  7. ALLOPURINOL [Concomitant]
  8. OXAZEPAM [Concomitant]
  9. ASPIRIN [Concomitant]
  10. BICALUTAMIDE [Concomitant]
  11. GOSERELIN [Concomitant]

REACTIONS (11)
  - BLOOD CREATININE INCREASED [None]
  - COMA [None]
  - CORONARY ANGIOPLASTY [None]
  - DRUG INTERACTION [None]
  - DYSPNOEA [None]
  - HAEMOGLOBIN DECREASED [None]
  - HYPOGLYCAEMIA [None]
  - PLEURITIC PAIN [None]
  - PNEUMONIA [None]
  - STENT PLACEMENT [None]
  - TROPONIN INCREASED [None]
